FAERS Safety Report 6342450-2 (Version None)
Quarter: 2009Q3

REPORT INFORMATION
  Report Type: 
  Country: None (occurrence: None)
  Receive Date: 20090904
  Receipt Date: 20090904
  Transmission Date: 20100115
  Serious: Yes (Disabling, Other)
  Sender: FDA-Public Use
  Company Number: None

PATIENT
  Age: 33 Year
  Sex: Female
  Weight: 90.7194 kg

DRUGS (2)
  1. BUPROPION HCL [Suspect]
     Indication: ANXIETY
     Dosage: 150MG 2X DAILY PO
     Route: 048
     Dates: start: 20090201, end: 20090210
  2. BUPROPION HCL [Suspect]
     Indication: DEPRESSION
     Dosage: 150MG 2X DAILY PO
     Route: 048
     Dates: start: 20090201, end: 20090210

REACTIONS (4)
  - MALAISE [None]
  - MIGRAINE [None]
  - PRODUCT QUALITY ISSUE [None]
  - PRODUCT SUBSTITUTION ISSUE [None]
